FAERS Safety Report 19163443 (Version 1)
Quarter: 2021Q2

REPORT INFORMATION
  Report Type: Spontaneous
  Country: US (occurrence: US)
  Receive Date: 20210421
  Receipt Date: 20210421
  Transmission Date: 20210717
  Serious: Yes (Other)
  Sender: FDA-Public Use
  Company Number: US-GLAXOSMITHKLINE-US2021GSK087957

PATIENT
  Sex: Male

DRUGS (10)
  1. RANITIDINE. [Suspect]
     Active Substance: RANITIDINE
     Indication: HYPERCHLORHYDRIA
  2. RANITIDINE. [Suspect]
     Active Substance: RANITIDINE
     Indication: PAIN
  3. RANITIDINE. [Suspect]
     Active Substance: RANITIDINE
     Indication: PAIN
  4. RANITIDINE. [Suspect]
     Active Substance: RANITIDINE
     Indication: DYSPEPSIA
     Dosage: 300 MG, WHEN NEEDED 3 TO 4 TABS PER WEEK
     Route: 065
     Dates: start: 201707, end: 201911
  5. RANITIDINE. [Suspect]
     Active Substance: RANITIDINE
     Indication: HYPERCHLORHYDRIA
  6. RANITIDINE. [Suspect]
     Active Substance: RANITIDINE
     Indication: DYSPEPSIA
     Dosage: 300 MG, WHEN NEEDED 3 TO 4 TABS PER WEEK
     Route: 065
     Dates: start: 201707, end: 201911
  7. RANITIDINE. [Suspect]
     Active Substance: RANITIDINE
     Indication: CONSTIPATION
  8. RANITIDINE. [Suspect]
     Active Substance: RANITIDINE
     Indication: HAEMORRHAGE
  9. RANITIDINE. [Suspect]
     Active Substance: RANITIDINE
     Indication: CONSTIPATION
  10. RANITIDINE. [Suspect]
     Active Substance: RANITIDINE
     Indication: HAEMORRHAGE

REACTIONS (1)
  - Colorectal cancer [Unknown]
